FAERS Safety Report 5932802-4 (Version None)
Quarter: 2008Q4

REPORT INFORMATION
  Report Type: 
  Country: None (occurrence: None)
  Receive Date: 20081028
  Receipt Date: 20081024
  Transmission Date: 20090506
  Serious: Yes (Disabling)
  Sender: FDA-Public Use
  Company Number: B0543383A

PATIENT
  Age: 59 Year
  Sex: Female

DRUGS (1)
  1. ARIXTRA [Suspect]
     Indication: THROMBOSIS PROPHYLAXIS
     Dosage: 2.5MG PER DAY
     Route: 058
     Dates: start: 20081013, end: 20081017

REACTIONS (1)
  - HEPATIC FUNCTION ABNORMAL [None]
